FAERS Safety Report 5116895-2 (Version None)
Quarter: 2006Q3

REPORT INFORMATION
  Report Type: 
  Country: None (occurrence: None)
  Receive Date: 20060925
  Receipt Date: 20060914
  Transmission Date: 20061208
  Serious: Yes (Other)
  Sender: FDA-Public Use
  Company Number: 2006BH013427

PATIENT

DRUGS (2)
  1. PHENYTOIN [Suspect]
     Indication: CONVULSION
     Dosage: 18 MG/KG
  2. SALINE [Concomitant]

REACTIONS (1)
  - RESPIRATORY DEPRESSION [None]
